FAERS Safety Report 10950642 (Version 1)
Quarter: 2015Q1

REPORT INFORMATION
  Report Type: Report from Study
  Country: JP (occurrence: JP)
  Receive Date: 20150324
  Receipt Date: 20150324
  Transmission Date: 20150721
  Serious: Yes (Life-Threatening, Hospitalization, Other)
  Sender: FDA-Public Use
  Company Number: JP-MYLANLABS-2015M1009355

PATIENT

DRUGS (4)
  1. CARVEDILOL. [Suspect]
     Active Substance: CARVEDILOL
     Indication: HYPERTENSION
     Dosage: 20MG
     Route: 065
  2. CIBENZOLINE [Suspect]
     Active Substance: CIFENLINE
     Indication: ATRIAL FIBRILLATION
     Dosage: 300MG
     Route: 065
  3. CARVEDILOL. [Suspect]
     Active Substance: CARVEDILOL
     Indication: ATRIAL FIBRILLATION
     Dosage: 20MG
     Route: 065
  4. CIBENZOLINE [Suspect]
     Active Substance: CIFENLINE
     Indication: HYPERTENSION
     Dosage: 300MG
     Route: 065

REACTIONS (2)
  - Sinus bradycardia [Recovered/Resolved]
  - Cardiogenic shock [Recovered/Resolved]
